FAERS Safety Report 8831862 (Version 2)
Quarter: 2012Q4

REPORT INFORMATION
  Report Type: 
  Country: US (occurrence: US)
  Receive Date: 20121009
  Receipt Date: 20121206
  Transmission Date: 20130627
  Serious: Yes (Hospitalization)
  Sender: FDA-Public Use
  Company Number: PHEH2012US019513

PATIENT
  Sex: Female

DRUGS (4)
  1. TEGRETOL [Suspect]
     Indication: TRIGEMINAL NEURALGIA
     Dosage: UNK UKN, UNK
     Dates: end: 2012
  2. FAMPRIDINE [Suspect]
     Indication: MULTIPLE SCLEROSIS
     Dosage: 12 mg, Q12H
     Route: 048
     Dates: start: 20110726
  3. TYSABRI [Concomitant]
     Dosage: UNK UKN, UNK
     Dates: end: 201206
  4. GABAPENTIN [Concomitant]
     Dosage: UNK UKN, UNK
     Dates: end: 201206

REACTIONS (5)
  - Chromaturia [Unknown]
  - Aplastic anaemia [Unknown]
  - Malaise [Unknown]
  - Petechiae [Unknown]
  - Fatigue [Unknown]
